FAERS Safety Report 14270805 (Version 2)
Quarter: 2017Q4

REPORT INFORMATION
  Report Type: Spontaneous
  Country: US (occurrence: US)
  Receive Date: 20171211
  Receipt Date: 20171219
  Transmission Date: 20180321
  Serious: Yes (Death, Other)
  Sender: FDA-Public Use
  Company Number: US-OTSUKA-12184008

PATIENT
  Age: 51 Year
  Sex: Male
  Weight: 43.54 kg

DRUGS (3)
  1. CLOZARIL [Concomitant]
     Active Substance: CLOZAPINE
     Indication: PRODUCT USED FOR UNKNOWN INDICATION
     Dosage: 500 MG, QD
     Route: 065
  2. ABILIFY [Suspect]
     Active Substance: ARIPIPRAZOLE
     Indication: PRODUCT USED FOR UNKNOWN INDICATION
     Dosage: 1 MONTH @15 MG/DAY TITRATED TO 30 MG/DAY FOR 1 MONTH PRIOR TO DEATH
     Route: 065
  3. TRILEPTAL [Concomitant]
     Active Substance: OXCARBAZEPINE
     Indication: PRODUCT USED FOR UNKNOWN INDICATION
     Dosage: 1200 MG, QD
     Route: 065
     Dates: start: 2002

REACTIONS (7)
  - Sudden death [Fatal]
  - White blood cell count increased [Fatal]
  - Fatigue [Fatal]
  - Feeling abnormal [Unknown]
  - Cough [Fatal]
  - Lymphocyte count decreased [Fatal]
  - Malaise [Fatal]
